FAERS Safety Report 5691512-1 (Version None)
Quarter: 2008Q2

REPORT INFORMATION
  Report Type: 
  Country: None (occurrence: None)
  Receive Date: 20080402
  Receipt Date: 20080321
  Transmission Date: 20081010
  Serious: Yes (Other)
  Sender: FDA-Public Use
  Company Number: BE-BAYER-200815561GPV

PATIENT
  Age: 82 Year
  Sex: Female

DRUGS (6)
  1. PROFLOX [Suspect]
     Indication: LOWER RESPIRATORY TRACT INFECTION
     Dosage: TOTAL DAILY DOSE: 400 MG  UNIT DOSE: 400 MG
     Route: 048
     Dates: start: 20080222, end: 20080225
  2. GABAPENTIN [Concomitant]
     Indication: TRIGEMINAL NEURALGIA
     Route: 065
  3. SINTROM [Concomitant]
     Indication: ATRIAL FIBRILLATION
     Route: 065
  4. SINTROM [Concomitant]
     Route: 065
  5. SIMVASTATIN [Concomitant]
     Indication: DRUG USE FOR UNKNOWN INDICATION
     Route: 065
  6. ISOTEN MINOR [Concomitant]
     Indication: DRUG USE FOR UNKNOWN INDICATION
     Route: 065

REACTIONS (3)
  - HYPOACUSIS [None]
  - INTERNATIONAL NORMALISED RATIO INCREASED [None]
  - VISION BLURRED [None]
